FAERS Safety Report 15264770 (Version 3)
Quarter: 2019Q2

REPORT INFORMATION
  Report Type: Spontaneous
  Country: US (occurrence: US)
  Receive Date: 20180810
  Receipt Date: 20190626
  Transmission Date: 20190711
  Serious: No
  Sender: FDA-Public Use
  Company Number: US-PFIZER INC-2018318504

PATIENT
  Age: 65 Year
  Sex: Female
  Weight: 63.49 kg

DRUGS (1)
  1. CHANTIX [Suspect]
     Active Substance: VARENICLINE TARTRATE
     Indication: SMOKING CESSATION THERAPY
     Dosage: 1 MG, 2X/DAY

REACTIONS (3)
  - Nausea [Unknown]
  - Feeling abnormal [Unknown]
  - Nervousness [Unknown]
